FAERS Safety Report 12008374 (Version 1)
Quarter: 2016Q1

REPORT INFORMATION
  Report Type: Spontaneous
  Country: US (occurrence: None)
  Receive Date: 20160203
  Receipt Date: 20160203
  Transmission Date: 20160526
  Serious: Yes (Hospitalization)
  Sender: FDA-Public Use
  Company Number: None

PATIENT
  Age: 56 Year
  Sex: Female
  Weight: 101.9 kg

DRUGS (1)
  1. REGADENOSON [Suspect]
     Active Substance: REGADENOSON
     Indication: CARDIOVASCULAR DISORDER
     Dates: start: 20150804, end: 20150804

REACTIONS (5)
  - Respiratory depression [None]
  - Diarrhoea [None]
  - Migraine [None]
  - Angina pectoris [None]
  - Procedural complication [None]

NARRATIVE: CASE EVENT DATE: 20150804
